FAERS Safety Report 11981996 (Version 1)
Quarter: 2016Q1

REPORT INFORMATION
  Report Type: Spontaneous
  Country: TR (occurrence: TR)
  Receive Date: 20160201
  Receipt Date: 20160201
  Transmission Date: 20160526
  Serious: Yes (Death, Hospitalization)
  Sender: FDA-Public Use
  Company Number: TR-CIPLA LTD.-2016TR00344

PATIENT

DRUGS (6)
  1. CYCLOPHOSPHAMIDE. [Suspect]
     Active Substance: CYCLOPHOSPHAMIDE
     Indication: INVASIVE DUCTAL BREAST CARCINOMA
     Route: 065
  2. 5-AZACYTIDINE [Suspect]
     Active Substance: AZACITIDINE
     Indication: INVASIVE DUCTAL BREAST CARCINOMA
     Route: 065
  3. TAMOXIFEN [Suspect]
     Active Substance: TAMOXIFEN
     Indication: INVASIVE DUCTAL BREAST CARCINOMA
     Route: 065
  4. LENALIDOMIDE [Suspect]
     Active Substance: LENALIDOMIDE
     Indication: INVASIVE DUCTAL BREAST CARCINOMA
     Route: 065
  5. EPIRUBICIN [Suspect]
     Active Substance: EPIRUBICIN
     Indication: INVASIVE DUCTAL BREAST CARCINOMA
     Route: 065
  6. PACLITAXEL. [Suspect]
     Active Substance: PACLITAXEL
     Indication: INVASIVE DUCTAL BREAST CARCINOMA
     Route: 065

REACTIONS (7)
  - Opportunistic infection [Unknown]
  - Neutropenic sepsis [Fatal]
  - Leukopenia [Unknown]
  - Pancytopenia [Unknown]
  - Leukaemic infiltration [Unknown]
  - Myelodysplastic syndrome [Unknown]
  - Leukaemia [Unknown]
